FAERS Safety Report 20194515 (Version 2)
Quarter: 2022Q1

REPORT INFORMATION
  Report Type: Spontaneous
  Country: ID (occurrence: ID)
  Receive Date: 20211216
  Receipt Date: 20220104
  Transmission Date: 20220423
  Serious: Yes (Other)
  Sender: FDA-Public Use
  Company Number: ID-MLMSERVICE-20211125-3239014-1

PATIENT
  Age: 14 Year
  Sex: Female

DRUGS (14)
  1. LINEZOLID [Suspect]
     Active Substance: LINEZOLID
     Indication: Disseminated tuberculosis
     Dosage: 10 MG/KG/DAY ONCE DAILY
  2. LINEZOLID [Suspect]
     Active Substance: LINEZOLID
     Indication: Tuberculosis
  3. LINEZOLID [Suspect]
     Active Substance: LINEZOLID
     Indication: Tuberculosis
  4. LINEZOLID [Suspect]
     Active Substance: LINEZOLID
     Indication: Tuberculosis
  5. CYCLOSERINE [Concomitant]
     Active Substance: CYCLOSERINE
     Indication: Disseminated tuberculosis
     Dosage: 10 MG/KG, 1X/DAY
  6. CYCLOSERINE [Concomitant]
     Active Substance: CYCLOSERINE
     Indication: Tuberculosis
  7. PYRAZINAMIDE [Concomitant]
     Active Substance: PYRAZINAMIDE
     Indication: Disseminated tuberculosis
     Dosage: 35 MG/KG, 1X/DAY
  8. PYRAZINAMIDE [Concomitant]
     Active Substance: PYRAZINAMIDE
     Indication: Tuberculosis
  9. ETHIONAMIDE [Concomitant]
     Active Substance: ETHIONAMIDE
     Indication: Disseminated tuberculosis
     Dosage: 15 MG/KG, 1X/DAY
  10. ETHIONAMIDE [Concomitant]
     Active Substance: ETHIONAMIDE
     Indication: Tuberculosis
  11. LEVOFLOXACIN [Concomitant]
     Active Substance: LEVOFLOXACIN
     Indication: Disseminated tuberculosis
     Dosage: 10 MG/KG, 1X/DAY
  12. LEVOFLOXACIN [Concomitant]
     Active Substance: LEVOFLOXACIN
     Indication: Tuberculosis
  13. PARA-AMINOSALICYLIC ACID [Concomitant]
     Active Substance: AMINOSALICYLIC ACID
     Indication: Tuberculosis
     Dosage: DIVIDED IN TWO DOSE
  14. PARA-AMINOSALICYLIC ACID [Concomitant]
     Active Substance: AMINOSALICYLIC ACID
     Indication: Tuberculosis

REACTIONS (2)
  - Toxicity to various agents [Unknown]
  - Off label use [Unknown]
